FAERS Safety Report 20015706 (Version 1)
Quarter: 2021Q4

REPORT INFORMATION
  Report Type: Spontaneous
  Country: US (occurrence: None)
  Receive Date: 20211101
  Receipt Date: 20211101
  Transmission Date: 20220303
  Serious: No
  Sender: FDA-Public Use
  Company Number: None

PATIENT
  Age: 20 Year
  Sex: Female
  Weight: 83.25 kg

DRUGS (1)
  1. CASIRIVIMAB\IMDEVIMAB [Suspect]
     Active Substance: CASIRIVIMAB\IMDEVIMAB
     Indication: COVID-19
     Dates: start: 20211027, end: 20211027

REACTIONS (4)
  - Maternal exposure timing unspecified [None]
  - Maternal drugs affecting foetus [None]
  - Injection site erythema [None]
  - Injection site urticaria [None]

NARRATIVE: CASE EVENT DATE: 20211028
